FAERS Safety Report 18195355 (Version 1)
Quarter: 2020Q3

REPORT INFORMATION
  Report Type: Other
  Country: MX (occurrence: MX)
  Receive Date: 20200826
  Receipt Date: 20200826
  Transmission Date: 20201103
  Serious: Yes (Other)
  Sender: FDA-Public Use
  Company Number: MX-ROCHE-2662883

PATIENT
  Age: 30 Year
  Sex: Male

DRUGS (1)
  1. OCREVUS [Suspect]
     Active Substance: OCRELIZUMAB
     Indication: MULTIPLE SCLEROSIS
     Dosage: 300 MG/10 ML (30 MG/ML)
     Route: 042
     Dates: start: 20200221

REACTIONS (8)
  - Sinusitis [Not Recovered/Not Resolved]
  - Nasal septum deviation [Not Recovered/Not Resolved]
  - Magnetic resonance imaging brain abnormal [Not Recovered/Not Resolved]
  - Central nervous system lesion [Not Recovered/Not Resolved]
  - Brain injury [Not Recovered/Not Resolved]
  - Cerebral atrophy [Not Recovered/Not Resolved]
  - Magnetic resonance imaging abnormal [Not Recovered/Not Resolved]
  - Demyelination [Not Recovered/Not Resolved]

NARRATIVE: CASE EVENT DATE: 20200811
